FAERS Safety Report 19477555 (Version 1)
Quarter: 2021Q2

REPORT INFORMATION
  Report Type: Spontaneous
  Country: SE (occurrence: SE)
  Receive Date: 20210630
  Receipt Date: 20210630
  Transmission Date: 20210717
  Serious: Yes (Disabling)
  Sender: FDA-Public Use
  Company Number: SE-TEVA-2021-SE-1927446

PATIENT
  Age: 18 Year
  Sex: Female
  Weight: 60 kg

DRUGS (5)
  1. ATARAX [Concomitant]
     Active Substance: HYDROXYZINE HYDROCHLORIDE
     Dosage: 25 MG 1 TABLET IF NEEDED, MAX 4 PCS / DAY
     Route: 048
     Dates: start: 20170816
  2. SERTRALINE [Concomitant]
     Active Substance: SERTRALINE HYDROCHLORIDE
     Dosage: 100 MILLIGRAM DAILY;
     Route: 048
     Dates: start: 20170816
  3. LAMOTRIGINE. [Concomitant]
     Active Substance: LAMOTRIGINE
     Dosage: 100 MILLIGRAM DAILY;
     Route: 048
     Dates: start: 20181115
  4. OLANZAPINE. [Suspect]
     Active Substance: OLANZAPINE
     Indication: MOOD SWINGS
     Dosage: 5 MILLIGRAM DAILY;
     Route: 048
     Dates: start: 20181115, end: 20200510
  5. SERTRALINE [Concomitant]
     Active Substance: SERTRALINE HYDROCHLORIDE
     Dosage: 25 MILLIGRAM DAILY;
     Route: 048
     Dates: start: 20180315

REACTIONS (5)
  - Flat affect [Unknown]
  - Increased appetite [Recovered/Resolved]
  - Weight increased [Recovering/Resolving]
  - Metabolic disorder [Unknown]
  - Breast enlargement [Not Recovered/Not Resolved]

NARRATIVE: CASE EVENT DATE: 20181115
